FAERS Safety Report 14525551 (Version 2)
Quarter: 2018Q2

REPORT INFORMATION
  Report Type: Spontaneous
  Country: PR (occurrence: US)
  Receive Date: 20180213
  Receipt Date: 20180511
  Transmission Date: 20180711
  Serious: Yes (Death, Hospitalization)
  Sender: FDA-Public Use
  Company Number: PR-JNJFOC-20180215531

PATIENT
  Age: 87 Year
  Sex: Female

DRUGS (6)
  1. XARELTO [Suspect]
     Active Substance: RIVAROXABAN
     Indication: THROMBOSIS PROPHYLAXIS
     Dosage: 10MG; 15MG AND 20MG
     Route: 048
     Dates: start: 20140101, end: 20160201
  2. XARELTO [Suspect]
     Active Substance: RIVAROXABAN
     Indication: ATRIAL FIBRILLATION
     Dosage: 10MG; 15MG AND 20 MG
     Route: 048
     Dates: start: 201602, end: 20160217
  3. XARELTO [Suspect]
     Active Substance: RIVAROXABAN
     Indication: CEREBROVASCULAR ACCIDENT PROPHYLAXIS
     Dosage: 10MG; 15MG AND 20MG
     Route: 048
     Dates: start: 20140101, end: 20160201
  4. XARELTO [Suspect]
     Active Substance: RIVAROXABAN
     Indication: ATRIAL FIBRILLATION
     Dosage: 10MG; 15MG AND 20MG
     Route: 048
     Dates: start: 20140101, end: 20160201
  5. XARELTO [Suspect]
     Active Substance: RIVAROXABAN
     Indication: THROMBOSIS PROPHYLAXIS
     Dosage: 10MG; 15MG AND 20 MG
     Route: 048
     Dates: start: 201602, end: 20160217
  6. XARELTO [Suspect]
     Active Substance: RIVAROXABAN
     Indication: CEREBROVASCULAR ACCIDENT PROPHYLAXIS
     Dosage: 10MG; 15MG AND 20 MG
     Route: 048
     Dates: start: 201602, end: 20160217

REACTIONS (2)
  - Gastrointestinal haemorrhage [Recovering/Resolving]
  - Respiratory failure [Unknown]

NARRATIVE: CASE EVENT DATE: 20140310
